FAERS Safety Report 20178390 (Version 15)
Quarter: 2024Q2

REPORT INFORMATION
  Report Type: Report from Study
  Country: CH (occurrence: CH)
  Receive Date: 20211213
  Receipt Date: 20240528
  Transmission Date: 20240715
  Serious: Yes (Hospitalization)
  Sender: FDA-Public Use
  Company Number: CH-ABBVIE-21K-151-4194306-00

PATIENT
  Age: 73 Year
  Sex: Female
  Weight: 78 kg

DRUGS (5)
  1. UPADACITINIB [Suspect]
     Active Substance: UPADACITINIB
     Indication: Rheumatoid arthritis
     Dosage: 15 MILLIGRAM
     Route: 048
     Dates: start: 20211001, end: 2022
  2. AMLODIPINUM [Concomitant]
     Indication: Hypertension
     Dosage: 160/12.5 MG
     Route: 048
  3. Co valsartan [Concomitant]
     Indication: Hypertension
     Dosage: 160/12.5 MG
     Route: 048
  4. VITAMIN D3 [Concomitant]
     Active Substance: CHOLECALCIFEROL
     Indication: Osteoporosis
     Dosage: 800 IU (INTERNATIONAL UNIT)
     Route: 048
  5. DICLOFENAC [Concomitant]
     Active Substance: DICLOFENAC
     Indication: Rheumatoid arthritis
     Dosage: 3 TO 4 TIMES PER WEEK
     Route: 048
     Dates: start: 2014

REACTIONS (9)
  - Crowned dens syndrome [Recovered/Resolved]
  - Arthralgia [Recovered/Resolved]
  - Arthralgia [Recovered/Resolved]
  - Road traffic accident [Recovered/Resolved]
  - COVID-19 [Recovered/Resolved]
  - Knee arthroplasty [Recovered/Resolved]
  - Respiratory tract infection [Recovered/Resolved]
  - Osteoarthritis [Recovered/Resolved]
  - Osteoarthritis [Recovered/Resolved]

NARRATIVE: CASE EVENT DATE: 20181003
